FAERS Safety Report 12832610 (Version 3)
Quarter: 2017Q4

REPORT INFORMATION
  Report Type: Spontaneous
  Country: US (occurrence: US)
  Receive Date: 20161010
  Receipt Date: 20171006
  Transmission Date: 20180320
  Serious: No
  Sender: FDA-Public Use
  Company Number: US-JAZZ-2016-US-013407

PATIENT
  Age: 47 Year
  Sex: Female

DRUGS (28)
  1. MAXZIDE [Concomitant]
     Active Substance: HYDROCHLOROTHIAZIDE\TRIAMTERENE
  2. FIORICET [Suspect]
     Active Substance: ACETAMINOPHEN\BUTALBITAL\CAFFEINE
     Indication: PRODUCT USED FOR UNKNOWN INDICATION
     Dosage: UNK
     Dates: start: 20160627
  3. MOBIC [Concomitant]
     Active Substance: MELOXICAM
  4. ZOVIRAX [Concomitant]
     Active Substance: ACYCLOVIR
  5. VITAMIN B2 [Concomitant]
     Active Substance: RIBOFLAVIN
  6. XYREM [Suspect]
     Active Substance: SODIUM OXYBATE
     Dosage: 4.5G, BID
     Route: 048
     Dates: start: 201112
  7. DEPAKOTE [Concomitant]
     Active Substance: DIVALPROEX SODIUM
  8. ASPIRIN. [Concomitant]
     Active Substance: ASPIRIN
  9. ZYRTEC [Concomitant]
     Active Substance: CETIRIZINE HYDROCHLORIDE
  10. FLECTOR [Concomitant]
     Active Substance: DICLOFENAC EPOLAMINE
  11. SINGULAIR [Concomitant]
     Active Substance: MONTELUKAST SODIUM
  12. VITAMIN D [Concomitant]
     Active Substance: CHOLECALCIFEROL
  13. XYREM [Suspect]
     Active Substance: SODIUM OXYBATE
     Dosage: DOSE ADJUSTMENTS
     Route: 048
     Dates: start: 200711, end: 201112
  14. HYDROCHLOROTHIAZIDE. [Concomitant]
     Active Substance: HYDROCHLOROTHIAZIDE
  15. POTASSIUM CL [Concomitant]
     Active Substance: POTASSIUM CHLORIDE
  16. TRAZODONE [Concomitant]
     Active Substance: TRAZODONE HYDROCHLORIDE
  17. FIBER [Concomitant]
     Active Substance: PSYLLIUM HUSK
  18. MAGNESIUM OXIDE. [Concomitant]
     Active Substance: MAGNESIUM OXIDE
  19. NUVARING [Concomitant]
     Active Substance: ETHINYL ESTRADIOL\ETONOGESTREL
  20. LIDODERM [Concomitant]
     Active Substance: LIDOCAINE
  21. LYRICA [Concomitant]
     Active Substance: PREGABALIN
  22. PROPRANOLOL [Concomitant]
     Active Substance: PROPRANOLOL HYDROCHLORIDE
  23. MULTIVITAMINS [Concomitant]
     Active Substance: VITAMINS
  24. ULTRAM [Concomitant]
     Active Substance: TRAMADOL HYDROCHLORIDE
  25. XYREM [Suspect]
     Active Substance: SODIUM OXYBATE
     Indication: NARCOLEPSY
     Dosage: 2.25G, BID
     Route: 048
     Dates: start: 200710, end: 200711
  26. NUVIGIL [Concomitant]
     Active Substance: ARMODAFINIL
  27. BIOTIN [Concomitant]
     Active Substance: BIOTIN
  28. CALCIUM [Concomitant]
     Active Substance: CALCIUM

REACTIONS (1)
  - Poor quality sleep [Unknown]

NARRATIVE: CASE EVENT DATE: 201606
